FAERS Safety Report 21004946 (Version 1)
Quarter: 2022Q2

REPORT INFORMATION
  Report Type: Report from Study
  Country: JP (occurrence: JP)
  Receive Date: 20220624
  Receipt Date: 20220624
  Transmission Date: 20220721
  Serious: Yes (Other)
  Sender: FDA-Public Use
  Company Number: JP-GLAXOSMITHKLINE-JP2022JPN086105

PATIENT

DRUGS (3)
  1. ADEFOVIR DIPIVOXIL [Suspect]
     Active Substance: ADEFOVIR DIPIVOXIL
     Indication: Hepatitis B
     Dosage: 10 MG
     Route: 048
     Dates: start: 2005
  2. ZEFIX [Suspect]
     Active Substance: LAMIVUDINE
     Indication: Hepatitis B
     Dosage: 100 MG
     Route: 048
  3. AZILSARTAN KAMEDOXOMIL [Suspect]
     Active Substance: AZILSARTAN KAMEDOXOMIL
     Dosage: 20 MG
     Route: 048

REACTIONS (3)
  - Tubulointerstitial nephritis [Unknown]
  - Renal tubular disorder [Unknown]
  - Nephropathy toxic [Unknown]

NARRATIVE: CASE EVENT DATE: 20150728
